FAERS Safety Report 13531227 (Version 6)
Quarter: 2018Q1

REPORT INFORMATION
  Report Type: Spontaneous
  Country: US (occurrence: US)
  Receive Date: 20170510
  Receipt Date: 20180112
  Transmission Date: 20180508
  Serious: No
  Sender: FDA-Public Use
  Company Number: US-PFIZER INC-2017195282

PATIENT
  Age: 79 Year
  Sex: Female

DRUGS (3)
  1. INDOMETHACIN. [Suspect]
     Active Substance: INDOMETHACIN
     Indication: ARTHRITIS
  2. INDOMETHACIN. [Suspect]
     Active Substance: INDOMETHACIN
     Indication: GOUT
  3. INDOMETHACIN. [Suspect]
     Active Substance: INDOMETHACIN
     Indication: ANTIINFLAMMATORY THERAPY
     Dosage: UNK

REACTIONS (5)
  - Product use in unapproved indication [Unknown]
  - Nausea [Recovered/Resolved]
  - Product use issue [Recovered/Resolved]
  - Gastrointestinal disorder [Recovered/Resolved]
  - Drug hypersensitivity [Recovered/Resolved]
